FAERS Safety Report 22133926 (Version 2)
Quarter: 2023Q2

REPORT INFORMATION
  Report Type: Other
  Country: US (occurrence: None)
  Receive Date: 20230324
  Receipt Date: 20230509
  Transmission Date: 20230722
  Serious: Yes (Other)
  Sender: FDA-Public Use
  Company Number: US-ROCHE-3311151

PATIENT
  Age: 71 Year
  Sex: Male
  Weight: 94.5 kg

DRUGS (22)
  1. VENCLEXTA [Suspect]
     Active Substance: VENETOCLAX
     Indication: Mantle cell lymphoma
     Dosage: 100 MG TABLET TAKE ONE TABLET (100 MG) MOUTH DAILY WITH BREAKFAST?LINE OF THERAPY THIRD OR GREATER.
     Route: 048
     Dates: start: 202001
  2. VENCLEXTA [Suspect]
     Active Substance: VENETOCLAX
     Indication: Neoplasm malignant
  3. RITUXAN [Suspect]
     Active Substance: RITUXIMAB
     Indication: Mantle cell lymphoma
     Route: 065
     Dates: start: 201606, end: 201610
  4. BENDAMUSTINE [Concomitant]
     Active Substance: BENDAMUSTINE
  5. VFEND [Concomitant]
     Active Substance: VORICONAZOLE
  6. CYCLOPHOSPHAMIDE [Concomitant]
     Active Substance: CYCLOPHOSPHAMIDE
  7. DOXORUBICIN [Concomitant]
     Active Substance: DOXORUBICIN
  8. VINCRISTINE [Concomitant]
     Active Substance: VINCRISTINE
  9. PREDNISONE [Concomitant]
     Active Substance: PREDNISONE
  10. LENALIDOMIDE [Concomitant]
     Active Substance: LENALIDOMIDE
  11. ZYRTEC [Concomitant]
     Active Substance: CETIRIZINE HYDROCHLORIDE
  12. ACALABRUTINIB [Concomitant]
     Active Substance: ACALABRUTINIB
  13. EVUSHELD [Concomitant]
     Active Substance: CILGAVIMAB\TIXAGEVIMAB
  14. CALQUENCE [Concomitant]
     Active Substance: ACALABRUTINIB
  15. ZOVIRAX [Concomitant]
     Active Substance: ACYCLOVIR
  16. ACCUNEB [Concomitant]
     Active Substance: ALBUTEROL SULFATE
  17. ELIQUIS [Concomitant]
     Active Substance: APIXABAN
  18. DYMISTA [Concomitant]
     Active Substance: AZELASTINE HYDROCHLORIDE\FLUTICASONE PROPIONATE
  19. TESSALON [Concomitant]
     Active Substance: BENZONATATE
  20. SYMBICORT [Concomitant]
     Active Substance: BUDESONIDE\FORMOTEROL FUMARATE DIHYDRATE
  21. WELLBUTRIN XL [Concomitant]
     Active Substance: BUPROPION HYDROCHLORIDE
  22. CARDIZEM [Concomitant]
     Active Substance: DILTIAZEM HYDROCHLORIDE

REACTIONS (6)
  - Ascites [Unknown]
  - Chylothorax [Unknown]
  - Pneumonia [Unknown]
  - Off label use [Unknown]
  - Fungal test positive [Unknown]
  - Fungal test positive [Unknown]

NARRATIVE: CASE EVENT DATE: 20191201
